FAERS Safety Report 23342422 (Version 1)
Quarter: 2023Q4

REPORT INFORMATION
  Report Type: Spontaneous
  Country: JP (occurrence: None)
  Receive Date: 20231227
  Receipt Date: 20231227
  Transmission Date: 20240110
  Serious: Yes (Hospitalization)
  Sender: FDA-Public Use
  Company Number: 2023A291522

PATIENT
  Age: 81 Year
  Sex: Female

DRUGS (1)
  1. FASENRA [Suspect]
     Active Substance: BENRALIZUMAB
     Indication: Asthma
     Dosage: 30 MG DOSE UNKNOWN
     Route: 058

REACTIONS (3)
  - Eosinophilic granulomatosis with polyangiitis [Unknown]
  - Inappropriate antidiuretic hormone secretion [Unknown]
  - Diarrhoea [Unknown]
